FAERS Safety Report 4484951-8 (Version None)
Quarter: 2004Q3

REPORT INFORMATION
  Report Type: 
  Country: None (occurrence: None)
  Receive Date: 20040921
  Receipt Date: 20030724
  Transmission Date: 20050211
  Serious: Yes (Hospitalization)
  Sender: FDA-Public Use
  Company Number: 163-20785-03070557

PATIENT
  Age: 75 Year
  Sex: Female
  Weight: 60.1 kg

DRUGS (4)
  1. THALOMID [Suspect]
     Indication: MULTIPLE MYELOMA
     Dosage: 50 MG, DAILY, ORAL
     Route: 048
     Dates: start: 20030410
  2. DOXIL [Suspect]
     Indication: MULTIPLE MYELOMA
     Dosage: 66 MG, IVPB
     Route: 042
     Dates: start: 20030410
  3. DECADRON [Suspect]
     Indication: MULTIPLE MYELOMA
     Dosage: 40 MG, DAILY X4, ORAL
     Route: 048
     Dates: start: 20030410
  4. VINCRISTINE [Suspect]
     Indication: MULTIPLE MYELOMA
     Dosage: 2 MG, IVP
     Route: 042
     Dates: start: 20030410

REACTIONS (5)
  - FATIGUE [None]
  - INFECTION [None]
  - MUSCULAR WEAKNESS [None]
  - PAIN [None]
  - PYREXIA [None]
